FAERS Safety Report 23384107 (Version 1)
Quarter: 2024Q1

REPORT INFORMATION
  Report Type: Spontaneous
  Country: US (occurrence: US)
  Receive Date: 20240109
  Receipt Date: 20240109
  Transmission Date: 20240409
  Serious: No
  Sender: FDA-Public Use
  Company Number: US-ANIPHARMA-2023-US-039755

PATIENT
  Sex: Female

DRUGS (1)
  1. FESOTERODINE FUMARATE [Suspect]
     Active Substance: FESOTERODINE FUMARATE
     Indication: Product used for unknown indication
     Route: 065

REACTIONS (2)
  - Aphasia [Unknown]
  - Drug ineffective [Unknown]
